FAERS Safety Report 24466077 (Version 1)
Quarter: 2024Q4

REPORT INFORMATION
  Report Type: Report from Study
  Country: US (occurrence: US)
  Receive Date: 20241018
  Receipt Date: 20241018
  Transmission Date: 20250115
  Serious: No
  Sender: ROCHE
  Company Number: US-ROCHE-3522515

PATIENT
  Age: 71 Year
  Sex: Female
  Weight: 61.36 kg

DRUGS (2)
  1. XOLAIR [Suspect]
     Active Substance: OMALIZUMAB
     Indication: Idiopathic urticaria
     Route: 058
     Dates: start: 20230921
  2. XOLAIR [Suspect]
     Active Substance: OMALIZUMAB
     Dosage: MOST RECENT DOSE: 26/FEB/2024.
     Route: 058

REACTIONS (2)
  - Drug ineffective [Unknown]
  - Urticaria [Not Recovered/Not Resolved]
